FAERS Safety Report 20911688 (Version 1)
Quarter: 2022Q2

REPORT INFORMATION
  Report Type: Spontaneous
  Country: CA (occurrence: CA)
  Receive Date: 20220603
  Receipt Date: 20220603
  Transmission Date: 20220721
  Serious: No
  Sender: FDA-Public Use
  Company Number: CA-ELI_LILLY_AND_COMPANY-CA202206001640

PATIENT
  Age: 31 Year
  Sex: Male
  Weight: 70 kg

DRUGS (1)
  1. OLANZAPINE [Suspect]
     Active Substance: OLANZAPINE
     Indication: Schizophrenia
     Dosage: 10 MG, DAILY
     Route: 048

REACTIONS (1)
  - Neutropenia [Recovered/Resolved]
